FAERS Safety Report 12353125 (Version 1)
Quarter: 2016Q2

REPORT INFORMATION
  Report Type: Not Available
  Country: None (occurrence: US)
  Receive Date: 20160510
  Receipt Date: 20160510
  Transmission Date: 20160815
  Serious: Yes (Other)
  Sender: FDA-Public Use
  Company Number: US-AKORN-30330

PATIENT
  Age: 8 Month
  Sex: Male

DRUGS (1)
  1. ACETAMINOPHEN AND CODEINE PHOSPHATE ORAL SOLUTION, USP [Suspect]
     Active Substance: ACETAMINOPHEN\CODEINE PHOSPHATE

REACTIONS (11)
  - Generalised tonic-clonic seizure [Recovered/Resolved]
  - Vomiting [Recovered/Resolved]
  - Urine output decreased [Recovered/Resolved]
  - Fixed bowel loop [Recovered/Resolved]
  - Decreased appetite [Recovered/Resolved]
  - Haematemesis [Recovered/Resolved]
  - Tonic convulsion [Recovered/Resolved]
  - Drug-induced liver injury [Recovered/Resolved]
  - Metabolic acidosis [None]
  - Lethargy [Recovered/Resolved]
  - Haematochezia [Recovered/Resolved]
